FAERS Safety Report 7862403-2 (Version None)
Quarter: 2011Q4

REPORT INFORMATION
  Report Type: 
  Country: None (occurrence: None)
  Receive Date: 20111027
  Receipt Date: 20101108
  Transmission Date: 20120403
  Serious: No
  Sender: FDA-Public Use
  Company Number: US-AMGEN-KDL260301

PATIENT
  Sex: Male

DRUGS (2)
  1. ENBREL [Suspect]
     Indication: PSORIATIC ARTHROPATHY
     Dates: start: 20050901
  2. ENBREL [Suspect]
     Indication: PSORIASIS
     Dosage: 50 MG, 2 TIMES/WK
     Route: 058
     Dates: start: 20050901

REACTIONS (7)
  - DRUG EFFECT DECREASED [None]
  - PAIN IN EXTREMITY [None]
  - STRESS [None]
  - ONYCHOMADESIS [None]
  - PSORIASIS [None]
  - SINUSITIS [None]
  - JOINT LOCK [None]
